FAERS Safety Report 6531153-7 (Version None)
Quarter: 2010Q1

REPORT INFORMATION
  Report Type: 
  Country: None (occurrence: None)
  Receive Date: 20100108
  Receipt Date: 20091231
  Transmission Date: 20100710
  Serious: Yes (Other)
  Sender: FDA-Public Use
  Company Number: US-AMGEN-QUU380565

PATIENT
  Sex: Female
  Weight: 42.7 kg

DRUGS (2)
  1. ENBREL [Suspect]
     Indication: PSORIASIS
     Route: 058
     Dates: start: 20070401
  2. AUGMENTIN [Suspect]

REACTIONS (6)
  - DEHYDRATION [None]
  - HEADACHE [None]
  - HYPERSENSITIVITY [None]
  - MUSCLE TWITCHING [None]
  - NASOPHARYNGITIS [None]
  - TACHYCARDIA [None]
